FAERS Safety Report 22053779 (Version 2)
Quarter: 2023Q2

REPORT INFORMATION
  Report Type: Spontaneous
  Country: US (occurrence: US)
  Receive Date: 20230302
  Receipt Date: 20230417
  Transmission Date: 20230721
  Serious: Yes (Other)
  Sender: FDA-Public Use
  Company Number: US-COOPERSURGICAL, INC.-US-2023CPS000579

PATIENT
  Age: 40 Year
  Sex: Female
  Weight: 82.54 kg

DRUGS (2)
  1. PARAGARD T 380A [Suspect]
     Active Substance: COPPER
     Indication: Product used for unknown indication
     Dosage: UNK
     Route: 015
     Dates: start: 20110101
  2. VITAMIN D NOS [Concomitant]
     Active Substance: VITAMIN D NOS
     Indication: Product used for unknown indication
     Route: 065

REACTIONS (10)
  - Injury associated with device [Unknown]
  - Deformity [Unknown]
  - Reproductive complication associated with device [Unknown]
  - Device breakage [Not Recovered/Not Resolved]
  - Foreign body in reproductive tract [Not Recovered/Not Resolved]
  - Complication of device removal [Not Recovered/Not Resolved]
  - Pain [Unknown]
  - Device use issue [Unknown]
  - Procedural pain [Unknown]
  - Anxiety [Unknown]

NARRATIVE: CASE EVENT DATE: 20210102
